FAERS Safety Report 4512937-3 (Version None)
Quarter: 2004Q4

REPORT INFORMATION
  Report Type: 
  Country: None (occurrence: None)
  Receive Date: 20041124
  Receipt Date: 20041108
  Transmission Date: 20050328
  Serious: No
  Sender: FDA-Public Use
  Company Number: USA041183445

PATIENT
  Age: 8 Year
  Sex: Male
  Weight: 49 kg

DRUGS (2)
  1. STRATTERA [Suspect]
     Dosage: 18 MG
     Dates: start: 20041023
  2. CEPHALEXIN [Concomitant]

REACTIONS (6)
  - ABDOMINAL PAIN LOWER [None]
  - APPENDICITIS [None]
  - DIARRHOEA [None]
  - INFLUENZA [None]
  - LYMPHADENOPATHY [None]
  - LYMPHOCYTE COUNT DECREASED [None]
